FAERS Safety Report 15974273 (Version 2)
Quarter: 2019Q1

REPORT INFORMATION
  Report Type: Report from Study
  Country: None (occurrence: US)
  Receive Date: 20190218
  Receipt Date: 20190327
  Transmission Date: 20190418
  Serious: Yes (Hospitalization, Other)
  Sender: FDA-Public Use
  Company Number: US-ABBVIE-19K-163-2666137-00

PATIENT
  Sex: Male
  Weight: 73.09 kg

DRUGS (3)
  1. HUMIRA [Suspect]
     Active Substance: ADALIMUMAB
     Indication: CROHN^S DISEASE
     Route: 058
     Dates: start: 20181218, end: 20181218
  2. HUMIRA [Suspect]
     Active Substance: ADALIMUMAB
     Indication: COLITIS ULCERATIVE
     Route: 058
     Dates: start: 20181217, end: 20181217
  3. HUMIRA [Suspect]
     Active Substance: ADALIMUMAB
     Route: 058
     Dates: start: 20181231, end: 20181231

REACTIONS (10)
  - Rash [Recovering/Resolving]
  - Adverse drug reaction [Recovering/Resolving]
  - Skin disorder [Recovering/Resolving]
  - Lip swelling [Recovered/Resolved]
  - Diarrhoea haemorrhagic [Recovered/Resolved]
  - Loss of consciousness [Recovered/Resolved]
  - Colonic abscess [Recovered/Resolved]
  - Weight decreased [Not Recovered/Not Resolved]
  - Peripheral swelling [Recovered/Resolved]
  - Asthenia [Not Recovered/Not Resolved]

NARRATIVE: CASE EVENT DATE: 2019
